FAERS Safety Report 6452048-3 (Version None)
Quarter: 2009Q4

REPORT INFORMATION
  Report Type: 
  Country: None (occurrence: None)
  Receive Date: 20091123
  Receipt Date: 20091010
  Transmission Date: 20100525
  Serious: Yes (Hospitalization)
  Sender: FDA-Public Use
  Company Number: US-AMGEN-QUU368680

PATIENT
  Sex: Female

DRUGS (2)
  1. ENBREL [Suspect]
     Indication: RHEUMATOID ARTHRITIS
     Route: 058
     Dates: start: 20000101
  2. IMURAN [Concomitant]
     Dates: start: 20090201

REACTIONS (9)
  - ARTHROPATHY [None]
  - COUGH [None]
  - HEADACHE [None]
  - LUNG ABSCESS [None]
  - OROPHARYNGEAL PAIN [None]
  - PAIN [None]
  - PNEUMONIA STAPHYLOCOCCAL [None]
  - SINUS CONGESTION [None]
  - SINUS HEADACHE [None]
